FAERS Safety Report 17834760 (Version 1)
Quarter: 2020Q2

REPORT INFORMATION
  Report Type: Report from Study
  Country: TR (occurrence: TR)
  Receive Date: 20200528
  Receipt Date: 20200528
  Transmission Date: 20200714
  Serious: Yes (Other)
  Sender: FDA-Public Use
  Company Number: TR-ROCHE-2609335

PATIENT

DRUGS (1)
  1. VISMODEGIB. [Suspect]
     Active Substance: VISMODEGIB
     Indication: BASAL CELL CARCINOMA
     Route: 065

REACTIONS (6)
  - Muscle spasms [Unknown]
  - Fatigue [Unknown]
  - Abdominal pain [Unknown]
  - Alopecia [Unknown]
  - Decreased appetite [Unknown]
  - Rash [Unknown]
